FAERS Safety Report 9999743 (Version 1)
Quarter: 2014Q1

REPORT INFORMATION
  Report Type: Report from Study
  Country: US (occurrence: US)
  Receive Date: 20140312
  Receipt Date: 20140312
  Transmission Date: 20141002
  Serious: No
  Sender: FDA-Public Use
  Company Number: US-009507513-1402USA013489

PATIENT
  Sex: 0

DRUGS (2)
  1. ZOLINZA [Suspect]
     Dosage: 400 MG, UNK
     Route: 048
  2. SORAFENIB [Suspect]

REACTIONS (1)
  - Platelet count decreased [Unknown]
